FAERS Safety Report 23619441 (Version 2)
Quarter: 2024Q1

REPORT INFORMATION
  Report Type: Report from Study
  Country: IL (occurrence: IL)
  Receive Date: 20240311
  Receipt Date: 20240330
  Transmission Date: 20240409
  Serious: Yes (Other)
  Sender: FDA-Public Use
  Company Number: IL-ABBVIE-5674285

PATIENT
  Age: 74 Year
  Sex: Female

DRUGS (2)
  1. CARBIDOPA\LEVODOPA [Suspect]
     Active Substance: CARBIDOPA\LEVODOPA
     Indication: Parkinson^s disease
     Route: 050
     Dates: start: 20211010
  2. CARBIDOPA\LEVODOPA [Suspect]
     Active Substance: CARBIDOPA\LEVODOPA
     Dosage: MORNING DOSAGE(ML)  10, CONTINUOUS DOSAGE 4 (ML/H)  , EXTRA DOSAGE 2.5 (ML)
     Route: 050

REACTIONS (9)
  - Intentional self-injury [Unknown]
  - On and off phenomenon [Unknown]
  - Depressed mood [Unknown]
  - Gait disturbance [Recovering/Resolving]
  - Dyskinesia [Unknown]
  - Depressed mood [Recovered/Resolved]
  - Intentional self-injury [Recovered/Resolved]
  - Musculoskeletal stiffness [Recovering/Resolving]
  - Device issue [Recovered/Resolved]

NARRATIVE: CASE EVENT DATE: 20240306
